FAERS Safety Report 10070015 (Version 1)
Quarter: 2014Q2

REPORT INFORMATION
  Report Type: Spontaneous
  Country: GB (occurrence: None)
  Receive Date: 20140408
  Receipt Date: 20140408
  Transmission Date: 20141212
  Serious: Yes (Hospitalization, Disabling, Other)
  Sender: FDA-Public Use
  Company Number: AUR-APL-2014-04020

PATIENT
  Age: 35 Year
  Sex: Male
  Weight: 98 kg

DRUGS (3)
  1. SERTRALINE [Suspect]
     Indication: DEPRESSED MOOD
     Route: 048
     Dates: start: 20131122
  2. AMITRIPTYLINE [Suspect]
     Indication: NEURALGIA
     Dates: start: 20131122
  3. DIAZEPAM (DIAZEPAM) [Concomitant]

REACTIONS (14)
  - Impaired work ability [None]
  - Extrasystoles [None]
  - Panic attack [None]
  - Hallucination, visual [None]
  - Mental disorder [None]
  - Altered state of consciousness [None]
  - Speech disorder [None]
  - Headache [None]
  - Chronic fatigue syndrome [None]
  - Pain in extremity [None]
  - Condition aggravated [None]
  - Palpitations [None]
  - Depression [None]
  - Drug interaction [None]
